FAERS Safety Report 9178099 (Version 2)
Quarter: 2013Q2

REPORT INFORMATION
  Report Type: Spontaneous
  Country: BR (occurrence: BR)
  Receive Date: 20130321
  Receipt Date: 20130502
  Transmission Date: 20140414
  Serious: Yes (Other)
  Sender: FDA-Public Use
  Company Number: BR-ELI_LILLY_AND_COMPANY-BR201303004457

PATIENT
  Sex: Female
  Weight: 80 kg

DRUGS (1)
  1. HUMULIN NPH [Suspect]
     Indication: DIABETES MELLITUS
     Dosage: UNK, UNKNOWN
     Route: 058

REACTIONS (2)
  - Injection site necrosis [Recovered/Resolved]
  - Injection site induration [Recovered/Resolved]
